FAERS Safety Report 6519230-8 (Version None)
Quarter: 2009Q4

REPORT INFORMATION
  Report Type: 
  Country: None (occurrence: None)
  Receive Date: 20091228
  Receipt Date: 20091215
  Transmission Date: 20100525
  Serious: Yes (Hospitalization, Other)
  Sender: FDA-Public Use
  Company Number: PHHY2009CL56078

PATIENT
  Age: 68 Year
  Sex: Female

DRUGS (2)
  1. TAREG D [Suspect]
     Indication: HYPERTENSION
     Dosage: 1/2  DF/ DAY
     Route: 048
  2. ATENOLOL [Concomitant]

REACTIONS (2)
  - COLON CANCER [None]
  - SURGERY [None]
